FAERS Safety Report 5313787-0 (Version None)
Quarter: 2007Q2

REPORT INFORMATION
  Report Type: 
  Country: None (occurrence: None)
  Receive Date: 20070501
  Receipt Date: 20070420
  Transmission Date: 20071010
  Serious: Yes (Hospitalization)
  Sender: FDA-Public Use
  Company Number: FR-GENENTECH-240380

PATIENT
  Age: 77 Year
  Sex: Male
  Weight: 80 kg

DRUGS (1)
  1. MABTHERA [Suspect]
     Indication: BLOOD DISORDER
     Dosage: UNK, UNK
     Route: 042
     Dates: start: 20070207, end: 20070214

REACTIONS (1)
  - NERVE ROOT LESION [None]
